FAERS Safety Report 23471610 (Version 2)
Quarter: 2024Q4

REPORT INFORMATION
  Report Type: Spontaneous
  Country: US (occurrence: US)
  Receive Date: 20240202
  Receipt Date: 20241010
  Transmission Date: 20250115
  Serious: No
  Sender: SANOFI AVENTIS
  Company Number: US-SA-SAC20240131000645

PATIENT
  Sex: Female
  Weight: 54 kg

DRUGS (4)
  1. DUPIXENT [Suspect]
     Active Substance: DUPILUMAB
     Indication: Illness
     Dosage: 300 MG, QOW
     Route: 058
  2. PROPRANOLOL [Concomitant]
     Active Substance: PROPRANOLOL HYDROCHLORIDE
  3. CLONIDINE [Concomitant]
     Active Substance: CLONIDINE
  4. TRINTELLIX [Interacting]
     Active Substance: VORTIOXETINE HYDROBROMIDE

REACTIONS (3)
  - Illness [Unknown]
  - Rash [Unknown]
  - Product dose omission issue [Unknown]
